FAERS Safety Report 4633766-6 (Version None)
Quarter: 2005Q1

REPORT INFORMATION
  Report Type: 
  Country: None (occurrence: None)
  Receive Date: 20050325
  Receipt Date: 20041222
  Transmission Date: 20050727
  Serious: No
  Sender: FDA-Public Use
  Company Number: USA041286827

PATIENT
  Age: 55 Year
  Sex: Female

DRUGS (1)
  1. FORTEO [Suspect]
     Dosage: 20 UG

REACTIONS (1)
  - NERVOUSNESS [None]
